FAERS Safety Report 5474726-5 (Version None)
Quarter: 2007Q3

REPORT INFORMATION
  Report Type: 
  Country: None (occurrence: None)
  Receive Date: 20070928
  Receipt Date: 20070914
  Transmission Date: 20080115
  Serious: Yes (Disabling)
  Sender: FDA-Public Use
  Company Number: 161553ISR

PATIENT
  Age: 65 Year
  Sex: Female

DRUGS (1)
  1. CABERGOLINE [Suspect]
     Indication: PARKINSON'S DISEASE
     Dosage: 4 MG (4 MG, 1 IN 1 D) ORAL
     Route: 048
     Dates: start: 20051122, end: 20070504

REACTIONS (3)
  - MITRAL VALVE DISEASE [None]
  - PULMONARY FIBROSIS [None]
  - PULMONARY HYPERTENSION [None]
